FAERS Safety Report 6192926-6 (Version None)
Quarter: 2009Q2

REPORT INFORMATION
  Report Type: 
  Country: None (occurrence: None)
  Receive Date: 20090518
  Receipt Date: 20090513
  Transmission Date: 20091009
  Serious: Yes (Death)
  Sender: FDA-Public Use
  Company Number: RU-ASTRAZENECA-2009SE01768

PATIENT
  Age: 67 Year
  Sex: Male
  Weight: 65 kg

DRUGS (6)
  1. MARCAINE [Suspect]
     Indication: SPINAL ANAESTHESIA
     Route: 037
     Dates: start: 20090217, end: 20090217
  2. NOVOCAINE [Suspect]
     Route: 058
     Dates: start: 20090217, end: 20090217
  3. POTASSIUM AND MAGNESIUM ASPARAGINATE [Concomitant]
     Indication: CORONARY ARTERY DISEASE
     Route: 042
     Dates: start: 20090216, end: 20090216
  4. POTASSIUM AND MAGNESIUM ASPARAGINATE [Concomitant]
     Indication: MYOCARDIAL FIBROSIS
     Route: 042
     Dates: start: 20090216, end: 20090216
  5. ADRENALINE HYDROCHLORIDE [Concomitant]
     Indication: SPINAL ANAESTHESIA
     Dosage: 1 DROP WITH MARCAINE SPINAL
     Route: 037
     Dates: start: 20090217, end: 20090217
  6. KETOROL [Concomitant]
     Indication: ANGINA PECTORIS
     Route: 030
     Dates: start: 20090217, end: 20090217

REACTIONS (1)
  - CARDIAC ARREST [None]
